FAERS Safety Report 8353310-X (Version None)
Quarter: 2012Q2

REPORT INFORMATION
  Report Type: 
  Country: None (occurrence: None)
  Receive Date: 20120511
  Receipt Date: 20120507
  Transmission Date: 20120825
  Serious: Yes (Other)
  Sender: FDA-Public Use
  Company Number: PHHY2011PE82378

PATIENT
  Sex: Female

DRUGS (3)
  1. VALSARTAN [Concomitant]
     Dosage: 40 MG, BID
  2. AMLODIPINE BESYLATE AND ATORVASTATIN CALCIUM [Concomitant]
     Dosage: 1 DF, DAILY
  3. DIOVAN [Suspect]
     Indication: HYPERTENSION
     Dosage: 160 MG, UNK
     Route: 048

REACTIONS (2)
  - PNEUMONIA [None]
  - MYOCARDIAL INFARCTION [None]
